FAERS Safety Report 8384849-9 (Version None)
Quarter: 2012Q2

REPORT INFORMATION
  Report Type: 
  Country: None (occurrence: None)
  Receive Date: 20120524
  Receipt Date: 20120522
  Transmission Date: 20120825
  Serious: Yes (Other)
  Sender: FDA-Public Use
  Company Number: GB-PFIZER INC-2012123276

PATIENT
  Age: 73 Year
  Sex: Male
  Weight: 74 kg

DRUGS (4)
  1. TAMSULOSIN [Concomitant]
     Dosage: UNK
  2. ATORVASTATIN CALCIUM [Suspect]
     Indication: TYPE 2 DIABETES MELLITUS
     Dosage: 10 MG, UNK
     Route: 048
  3. METFORMIN [Concomitant]
     Dosage: UNK
  4. CLOPIDOGREL [Concomitant]
     Dosage: UNK

REACTIONS (1)
  - MEMORY IMPAIRMENT [None]
